FAERS Safety Report 9982084 (Version 1)
Quarter: 2014Q1

REPORT INFORMATION
  Report Type: Spontaneous
  Country: None (occurrence: None)
  Receive Date: 20140306
  Receipt Date: 20140306
  Transmission Date: 20141002
  Serious: Yes (Hospitalization)
  Sender: FDA-Public Use
  Company Number: None

PATIENT
  Age: 67 Year
  Sex: Male

DRUGS (2)
  1. HALOPERIDOL [Suspect]
     Indication: DELIRIUM
     Route: 042
     Dates: start: 20131110, end: 20131112
  2. HALOPERIDOL [Suspect]
     Indication: AGITATION
     Route: 042
     Dates: start: 20131110, end: 20131112

REACTIONS (1)
  - Convulsion [None]
